FAERS Safety Report 7436105-0 (Version None)
Quarter: 2011Q2

REPORT INFORMATION
  Report Type: 
  Country: None (occurrence: None)
  Receive Date: 20110425
  Receipt Date: 20110415
  Transmission Date: 20111010
  Serious: Yes (Hospitalization)
  Sender: FDA-Public Use
  Company Number: NL-MEDIMMUNE-MEDI-0013123

PATIENT
  Sex: Female
  Weight: 3.37 kg

DRUGS (1)
  1. SYNAGIS [Suspect]
     Route: 030
     Dates: start: 20110218, end: 20110318

REACTIONS (4)
  - ABDOMINAL PAIN [None]
  - WEIGHT DECREASED [None]
  - MALAISE [None]
  - BODY TEMPERATURE DECREASED [None]
